FAERS Safety Report 5542321-5 (Version None)
Quarter: 2007Q4

REPORT INFORMATION
  Report Type: 
  Country: None (occurrence: None)
  Receive Date: 20071210
  Receipt Date: 20071128
  Transmission Date: 20080405
  Serious: Yes (Other)
  Sender: FDA-Public Use
  Company Number: GB-ASTRAZENECA-2007GB02437

PATIENT

DRUGS (3)
  1. ARIMIDEX [Suspect]
     Route: 048
     Dates: start: 20020101, end: 20071122
  2. ASPIRIN [Concomitant]
  3. ATORVASTATIN [Concomitant]

REACTIONS (2)
  - DEPRESSION [None]
  - TEARFULNESS [None]
